FAERS Safety Report 5133058-5 (Version None)
Quarter: 2006Q4

REPORT INFORMATION
  Report Type: 
  Country: None (occurrence: None)
  Receive Date: 20061018
  Receipt Date: 20061006
  Transmission Date: 20070319
  Serious: Yes (Life-Threatening, Hospitalization)
  Sender: FDA-Public Use
  Company Number: CHWYE150506OCT06

PATIENT
  Age: 89 Year
  Sex: Female

DRUGS (14)
  1. EFFEXOR [Suspect]
     Indication: DEPRESSION
     Dosage: SEE IMAGE
     Route: 048
     Dates: start: 20060913, end: 20060917
  2. EFFEXOR [Suspect]
     Indication: DEPRESSION
     Dosage: SEE IMAGE
     Route: 048
     Dates: start: 20060918, end: 20060922
  3. HALDOL DEPOT (HALOPERIDOL DECANOATE, , 0) [Suspect]
     Indication: AGITATION
     Dosage: SEE IMAGE
     Route: 058
     Dates: start: 20060912, end: 20060912
  4. HALDOL DEPOT (HALOPERIDOL DECANOATE, , 0) [Suspect]
     Indication: RESTLESSNESS
     Dosage: SEE IMAGE
     Route: 058
     Dates: start: 20060912, end: 20060912
  5. HALDOL DEPOT (HALOPERIDOL DECANOATE, , 0) [Suspect]
     Indication: AGITATION
     Dosage: SEE IMAGE
     Route: 058
     Dates: start: 20060919, end: 20060919
  6. HALDOL DEPOT (HALOPERIDOL DECANOATE, , 0) [Suspect]
     Indication: RESTLESSNESS
     Dosage: SEE IMAGE
     Route: 058
     Dates: start: 20060919, end: 20060919
  7. MYCOSTATIN [Suspect]
     Indication: FUNGAL INFECTION
     Dosage: 5 ML 5X PER 1 DAY TOPICAL
     Route: 061
     Dates: start: 20060920, end: 20060922
  8. SEROQUEL [Suspect]
     Indication: AGITATION
     Dosage: 6.25 MG 2X PER 1 DAY ORAL
     Route: 048
     Dates: start: 20060912, end: 20060922
  9. SEROQUEL [Suspect]
     Indication: RESTLESSNESS
     Dosage: 6.25 MG 2X PER 1 DAY ORAL
     Route: 048
     Dates: start: 20060912, end: 20060922
  10. LORAZEPAM [Suspect]
     Indication: AGITATION
     Dosage: 1 MG 1X PER 1 DAY ORAL
     Route: 048
     Dates: start: 20060901, end: 20060922
  11. LORAZEPAM [Suspect]
     Indication: RESTLESSNESS
     Dosage: 1 MG 1X PER 1 DAY ORAL
     Route: 048
     Dates: start: 20060901, end: 20060922
  12. BUPRENORPHINE HCL [Concomitant]
  13. NORVASC [Concomitant]
  14. FOSAMAX [Concomitant]

REACTIONS (8)
  - CREATININE RENAL CLEARANCE DECREASED [None]
  - DISORIENTATION [None]
  - ERYTHEMA MULTIFORME [None]
  - HAEMATOCRIT DECREASED [None]
  - HAEMOGLOBIN DECREASED [None]
  - INTERNATIONAL NORMALISED RATIO INCREASED [None]
  - PORIOMANIA [None]
  - STEVENS-JOHNSON SYNDROME [None]
